FAERS Safety Report 4422806-5 (Version None)
Quarter: 2004Q3

REPORT INFORMATION
  Report Type: 
  Country: None (occurrence: None)
  Receive Date: 20040811
  Receipt Date: 20040802
  Transmission Date: 20050211
  Serious: Yes (Other)
  Sender: FDA-Public Use
  Company Number: PHBS2004IN10386

PATIENT
  Age: 29 Year
  Sex: Female

DRUGS (1)
  1. OXYTOCIN [Suspect]
     Indication: LABOUR INDUCTION
     Dosage: 2.5 U / 500 ML RINGER LACTATE
     Route: 042

REACTIONS (3)
  - BRADYCARDIA FOETAL [None]
  - CAESAREAN SECTION [None]
  - NORMAL NEWBORN [None]
